FAERS Safety Report 6409923-5 (Version None)
Quarter: 2009Q4

REPORT INFORMATION
  Report Type: 
  Country: None (occurrence: None)
  Receive Date: 20091021
  Receipt Date: 20091021
  Transmission Date: 20100525
  Serious: Yes (Hospitalization, Disabling, Other)
  Sender: FDA-Public Use
  Company Number: None

PATIENT
  Age: 32 Year
  Sex: Female
  Weight: 50.8029 kg

DRUGS (1)
  1. ORTHO-CEPT [Suspect]
     Indication: CONTRACEPTION
     Dosage: 0.15/0.03 MG ONE DAILY PO
     Route: 048
     Dates: start: 20090306, end: 20090917

REACTIONS (2)
  - PAIN IN EXTREMITY [None]
  - THROMBOSIS [None]
